FAERS Safety Report 9506777 (Version 1)
Quarter: 2013Q3

REPORT INFORMATION
  Report Type: Spontaneous
  Country: US (occurrence: US)
  Receive Date: 20130909
  Receipt Date: 20130909
  Transmission Date: 20140515
  Serious: No
  Sender: FDA-Public Use
  Company Number: US-B.I. PHARMACEUTICALS,INC./RIDGEFIELD-2013-BI-26754BP

PATIENT
  Sex: Female
  Weight: 98 kg

DRUGS (5)
  1. COMBIVENT [Suspect]
     Indication: EMPHYSEMA
     Dosage: STRENGTH: 18 MCG/ 103 MCG
     Route: 055
     Dates: end: 201307
  2. ARMOUR THYROID [Concomitant]
     Indication: HYPOTHYROIDISM
     Dosage: 60 MG
     Route: 048
  3. PROAIR [Concomitant]
     Indication: EMPHYSEMA
     Route: 055
  4. SYMBICORT [Concomitant]
     Indication: EMPHYSEMA
     Dosage: STRENGTH: 160 MCG/4.5 MCG; DAILY DOSE: 320-640 MCG/9-18 MCG
     Route: 055
  5. NIFEDIAC [Concomitant]
     Indication: HYPERTENSION
     Dosage: 60 MG
     Route: 048

REACTIONS (2)
  - Ear congestion [Not Recovered/Not Resolved]
  - Dyspnoea [Recovered/Resolved]
